FAERS Safety Report 21224099 (Version 1)
Quarter: 2022Q3

REPORT INFORMATION
  Report Type: Spontaneous
  Country: US (occurrence: US)
  Receive Date: 20220817
  Receipt Date: 20220817
  Transmission Date: 20221027
  Serious: No
  Sender: FDA-Public Use
  Company Number: US-SA-2022MK000198

PATIENT
  Age: 52 Year
  Sex: Female

DRUGS (5)
  1. AFREZZA [Suspect]
     Active Substance: INSULIN HUMAN
     Indication: Type 1 diabetes mellitus
     Dosage: USES FOR CORRECTIONS/BOLUS SEVERAL TIMES A DAY; AVERAGE DOSE IS 16-20 UNITS
     Dates: start: 202204
  2. AFREZZA [Suspect]
     Active Substance: INSULIN HUMAN
     Dosage: USES FOR CORRECTIONS/BOLUS SEVERAL TIMES A DAY; AVERAGE DOSE IS 16-20 UNITS
     Dates: start: 202204
  3. AFREZZA [Suspect]
     Active Substance: INSULIN HUMAN
     Dosage: USES FOR CORRECTIONS/BOLUS SEVERAL TIMES A DAY; AVERAGE DOSE IS 16-20 UNITS
     Dates: start: 202204
  4. NOVOLOG [Concomitant]
     Active Substance: INSULIN ASPART
     Indication: Type 1 diabetes mellitus
  5. OZEMPIC [Concomitant]
     Active Substance: SEMAGLUTIDE
     Indication: Type 1 diabetes mellitus

REACTIONS (2)
  - Product dispensing error [Unknown]
  - Intentional product use issue [Unknown]
